FAERS Safety Report 6316155-8 (Version None)
Quarter: 2009Q3

REPORT INFORMATION
  Report Type: 
  Country: None (occurrence: None)
  Receive Date: 20090820
  Receipt Date: 20090807
  Transmission Date: 20100115
  Serious: Yes (Hospitalization, Other)
  Sender: FDA-Public Use
  Company Number: US-MYLANLABS-2009S1014276

PATIENT
  Age: 92 Year
  Sex: Female

DRUGS (11)
  1. FENTANYL TRANSDERMAL SYSTEM [Suspect]
     Dosage: CHANGED Q72H
     Route: 062
  2. NORCO [Concomitant]
     Route: 048
  3. BETHANECHOL [Concomitant]
     Route: 048
  4. FLOMAX /01280302/ [Concomitant]
     Route: 048
  5. ARICEPT [Concomitant]
     Route: 048
  6. FUROSEMIDE [Concomitant]
     Route: 048
  7. IMDUR [Concomitant]
     Route: 048
  8. ASPIRIN [Concomitant]
  9. TOPROL-XL [Concomitant]
     Route: 048
  10. MEGACE [Concomitant]
     Route: 048
  11. SYNTHROID [Concomitant]
     Route: 048

REACTIONS (2)
  - CONFUSIONAL STATE [None]
  - INCORRECT DOSE ADMINISTERED [None]
